FAERS Safety Report 4813693-1 (Version None)
Quarter: 2005Q4

REPORT INFORMATION
  Report Type: 
  Country: None (occurrence: None)
  Receive Date: 20051028
  Receipt Date: 20050615
  Transmission Date: 20060501
  Serious: No
  Sender: FDA-Public Use
  Company Number: US-GLAXOSMITHKLINE-A0562809A

PATIENT
  Age: 61 Year
  Sex: Male

DRUGS (3)
  1. IMITREX [Suspect]
     Indication: CLUSTER HEADACHE
     Route: 045
  2. LITHIUM CARBONATE [Suspect]
     Indication: CLUSTER HEADACHE
     Dosage: 300MG THREE TIMES PER DAY
     Route: 048
     Dates: start: 20020101, end: 20020101
  3. AMITRIPTYLINE HCL [Suspect]
     Indication: CLUSTER HEADACHE
     Dosage: 50MG AT NIGHT
     Dates: start: 20020101, end: 20020101

REACTIONS (2)
  - COGNITIVE DISORDER [None]
  - DRUG INEFFECTIVE [None]
